FAERS Safety Report 10627913 (Version 2)
Quarter: 2014Q4

REPORT INFORMATION
  Report Type: Spontaneous
  Country: US (occurrence: US)
  Receive Date: 20141205
  Receipt Date: 20141205
  Transmission Date: 20150529
  Serious: No
  Sender: FDA-Public Use
  Company Number: US-BRISTOL-MYERS SQUIBB COMPANY-21537139

PATIENT
  Age: 70 Year
  Sex: Female
  Weight: 140 kg

DRUGS (2)
  1. PRAVASTATIN SODIUM. [Suspect]
     Active Substance: PRAVASTATIN SODIUM
  2. ENOXAPARIN [Suspect]
     Active Substance: ENOXAPARIN

REACTIONS (5)
  - Paraesthesia oral [Recovered/Resolved]
  - Injection site bruising [Not Recovered/Not Resolved]
  - Contusion [Not Recovered/Not Resolved]
  - Dizziness [Unknown]
  - Dyspnoea [Recovered/Resolved]
